FAERS Safety Report 16641879 (Version 3)
Quarter: 2019Q3

REPORT INFORMATION
  Report Type: Spontaneous
  Country: JP (occurrence: JP)
  Receive Date: 20190729
  Receipt Date: 20190902
  Transmission Date: 20191004
  Serious: Yes (Life-Threatening, Hospitalization, Other)
  Sender: FDA-Public Use
  Company Number: JP-AMGEN-JPNSP2019112466

PATIENT
  Age: 80 Year
  Sex: Female

DRUGS (8)
  1. ADONA (AC-17) [Concomitant]
     Dosage: 30 MILLIGRAM, BID
     Dates: start: 20180926
  2. EVENITY [Suspect]
     Active Substance: ROMOSOZUMAB-AQQG
     Indication: OSTEOPOROSIS
     Dosage: 210 MILLIGRAM
     Route: 058
     Dates: start: 2019, end: 2019
  3. AMLODIPINE BESILATE [Concomitant]
     Active Substance: AMLODIPINE BESYLATE
     Indication: HYPERTENSION
     Dosage: 5 MILLIGRAM, QD
     Dates: start: 20180926
  4. LANSOPRAZOLE. [Concomitant]
     Active Substance: LANSOPRAZOLE
     Dosage: 15 MILLIGRAM, QD
     Dates: start: 20180926
  5. EDIROL [Concomitant]
     Active Substance: ELDECALCITOL
     Dosage: 0.5 MICROGRAM, QD
     Dates: start: 20190516
  6. PILSICAINIDE HCL [Concomitant]
     Dosage: 50 MILLIGRAM, TID
     Dates: start: 20180926
  7. BETANIS [Concomitant]
     Active Substance: MIRABEGRON
     Dosage: 50 MILLIGRAM, QD
     Dates: start: 20180926
  8. OLMESARTAN MEDOXOMIL. [Concomitant]
     Active Substance: OLMESARTAN MEDOXOMIL
     Indication: HYPERTENSION
     Dosage: 10 MILLIGRAM, QD
     Dates: start: 20180926

REACTIONS (2)
  - Arrhythmia [Recovered/Resolved]
  - Hypocalcaemia [Not Recovered/Not Resolved]

NARRATIVE: CASE EVENT DATE: 20190710
